FAERS Safety Report 18484554 (Version 1)
Quarter: 2020Q4

REPORT INFORMATION
  Report Type: Spontaneous
  Country: FR (occurrence: FR)
  Receive Date: 20201110
  Receipt Date: 20201110
  Transmission Date: 20210114
  Serious: Yes (Other)
  Sender: FDA-Public Use
  Company Number: FR-ACCORD-207778

PATIENT
  Age: 70 Year
  Sex: Male

DRUGS (10)
  1. CISPLATIN. [Suspect]
     Active Substance: CISPLATIN
     Indication: URETHRAL CANCER
     Dates: start: 20170503, end: 20170904
  2. IRBESARTAN. [Concomitant]
     Active Substance: IRBESARTAN
  3. GEMCITABINE. [Concomitant]
     Active Substance: GEMCITABINE
     Indication: URETHRAL CANCER
     Dates: start: 20170503, end: 20170904
  4. AMIODARONE [Concomitant]
     Active Substance: AMIODARONE
  5. NEBIVOLOL. [Concomitant]
     Active Substance: NEBIVOLOL
  6. TINZAPARIN/TINZAPARIN SODIUM [Concomitant]
     Active Substance: TINZAPARIN SODIUM
  7. SIMVASTATIN. [Concomitant]
     Active Substance: SIMVASTATIN
  8. ALLOPURINOL. [Concomitant]
     Active Substance: ALLOPURINOL
  9. DILTIAZEM. [Concomitant]
     Active Substance: DILTIAZEM
  10. EZETIMIBE. [Concomitant]
     Active Substance: EZETIMIBE

REACTIONS (2)
  - Nephropathy toxic [Recovering/Resolving]
  - Renal tubular disorder [Recovering/Resolving]

NARRATIVE: CASE EVENT DATE: 2017
